FAERS Safety Report 5102565-3 (Version None)
Quarter: 2006Q3

REPORT INFORMATION
  Report Type: 
  Country: None (occurrence: None)
  Receive Date: 20060912
  Receipt Date: 20060829
  Transmission Date: 20061208
  Serious: Yes (Other)
  Sender: FDA-Public Use
  Company Number: SE-GLAXOSMITHKLINE-B0437086A

PATIENT
  Sex: Female

DRUGS (4)
  1. BECOTIDE NASAL [Suspect]
     Indication: DRUG USE FOR UNKNOWN INDICATION
     Route: 065
  2. VENTOLIN [Concomitant]
  3. SERETIDE [Concomitant]
  4. AERIUS [Concomitant]

REACTIONS (3)
  - ASTHMA [None]
  - OBSTRUCTIVE AIRWAYS DISORDER [None]
  - PAROSMIA [None]
